FAERS Safety Report 22114020 (Version 1)
Quarter: 2023Q1

REPORT INFORMATION
  Report Type: Spontaneous
  Country: US (occurrence: US)
  Receive Date: 20230320
  Receipt Date: 20230320
  Transmission Date: 20230417
  Serious: Yes (Death, Hospitalization, Other)
  Sender: FDA-Public Use
  Company Number: US-MICRO LABS LIMITED-ML2023-01525

PATIENT
  Age: 16 Year
  Sex: Male

DRUGS (2)
  1. CAFFEINE CITRATE [Suspect]
     Active Substance: CAFFEINE CITRATE
     Indication: Product used for unknown indication
  2. METHAMPHETAMINE [Suspect]
     Active Substance: METHAMPHETAMINE
     Indication: Product used for unknown indication

REACTIONS (13)
  - Hypoglycaemia [Fatal]
  - Acute kidney injury [Fatal]
  - Coagulopathy [Fatal]
  - Coma [Fatal]
  - Hepatotoxicity [Fatal]
  - Myocardial ischaemia [Fatal]
  - Thrombocytopenia [Fatal]
  - Hyperreflexia [Fatal]
  - Tremor [Fatal]
  - Seizure [Fatal]
  - Tachycardia [Fatal]
  - Leukocytosis [Fatal]
  - Toxicity to various agents [Fatal]
